FAERS Safety Report 19159716 (Version 4)
Quarter: 2021Q2

REPORT INFORMATION
  Report Type: Spontaneous
  Country: US (occurrence: US)
  Receive Date: 20210420
  Receipt Date: 20210428
  Transmission Date: 20210717
  Serious: Yes (Hospitalization, Other)
  Sender: FDA-Public Use
  Company Number: US-CELGENEUS-USA-20210402783

PATIENT
  Age: 12 Year
  Sex: Male

DRUGS (7)
  1. CYCLOPHOSPHAMIDE. [Concomitant]
     Active Substance: CYCLOPHOSPHAMIDE
     Indication: BRAIN NEOPLASM MALIGNANT
     Route: 048
     Dates: start: 2020
  2. THALOMID [Suspect]
     Active Substance: THALIDOMIDE
     Dosage: 550 MILLIGRAM
     Route: 048
     Dates: start: 202010
  3. THALOMID [Suspect]
     Active Substance: THALIDOMIDE
     Indication: BRAIN NEOPLASM MALIGNANT
     Dosage: 400MG?250MG
     Route: 048
     Dates: start: 202006
  4. THALOMID [Suspect]
     Active Substance: THALIDOMIDE
     Indication: OFF LABEL USE
     Dosage: 600 MILLIGRAM
     Route: 048
     Dates: start: 202009
  5. CELEBREX [Concomitant]
     Active Substance: CELECOXIB
     Indication: BRAIN NEOPLASM MALIGNANT
     Route: 048
     Dates: start: 2020
  6. THALOMID [Suspect]
     Active Substance: THALIDOMIDE
     Indication: EPENDYMOMA MALIGNANT
     Dosage: 200 MILLIGRAM
     Route: 048
     Dates: start: 20200526
  7. ETOPOSIDE. [Concomitant]
     Active Substance: ETOPOSIDE
     Indication: BRAIN NEOPLASM MALIGNANT
     Route: 048
     Dates: start: 2020

REACTIONS (3)
  - Intracranial pressure increased [Recovering/Resolving]
  - Papilloedema [Not Recovered/Not Resolved]
  - Fatigue [Not Recovered/Not Resolved]

NARRATIVE: CASE EVENT DATE: 20210330
